FAERS Safety Report 8082614-3 (Version None)
Quarter: 2012Q1

REPORT INFORMATION
  Report Type: 
  Country: None (occurrence: None)
  Receive Date: 20120127
  Receipt Date: 20110217
  Transmission Date: 20120608
  Serious: No
  Sender: FDA-Public Use
  Company Number: US-ABBOTT-11P-163-0707222-00

PATIENT
  Sex: Female
  Weight: 74.91 kg

DRUGS (5)
  1. HUMIRA [Suspect]
     Indication: PSORIATIC ARTHROPATHY
     Dosage: TOOK ONLY ONCE
     Route: 058
     Dates: start: 20110113, end: 20110113
  2. SEVERAL UNKNOWN STEROID CREAMS [Concomitant]
     Indication: PSORIASIS
     Route: 061
  3. ARTHROTEC EC [Concomitant]
     Indication: PRODUCT USED FOR UNKNOWN INDICATION
     Route: 048
  4. PREVACID [Concomitant]
     Indication: BARRETT'S OESOPHAGUS
  5. SYNTHROID [Concomitant]
     Indication: HYPOTHYROIDISM

REACTIONS (1)
  - MUSCULOSKELETAL STIFFNESS [None]
